FAERS Safety Report 8244701-6 (Version None)
Quarter: 2012Q1

REPORT INFORMATION
  Report Type: 
  Country: None (occurrence: None)
  Receive Date: 20120329
  Receipt Date: 20110203
  Transmission Date: 20120608
  Serious: No
  Sender: FDA-Public Use
  Company Number: US-MYLANLABS-2011S1002504

PATIENT
  Age: 44 Year
  Sex: Male
  Weight: 126.1 kg

DRUGS (4)
  1. DIAZEPAM [Concomitant]
     Indication: MUSCLE SPASMS
  2. ACTIQ [Concomitant]
     Indication: BREAKTHROUGH PAIN
     Dosage: UP TO 3 PER DAY
  3. AMBIEN [Concomitant]
     Indication: INSOMNIA
  4. FENTANYL-100 [Suspect]
     Indication: NECK PAIN
     Dosage: CHANGED Q48H
     Route: 062
     Dates: start: 20080101

REACTIONS (1)
  - APPLICATION SITE DISCOLOURATION [None]
